FAERS Safety Report 13882811 (Version 1)
Quarter: 2017Q3

REPORT INFORMATION
  Report Type: Spontaneous
  Country: GB (occurrence: GB)
  Receive Date: 20170818
  Receipt Date: 20170818
  Transmission Date: 20171127
  Serious: Yes (Other)
  Sender: FDA-Public Use
  Company Number: GB-BRACCO IMAGING SPA-2017GB03457

PATIENT
  Age: 55 Year
  Sex: Female

DRUGS (1)
  1. NIOPAM 300 [Suspect]
     Active Substance: IOPAMIDOL
     Indication: COMPUTERISED TOMOGRAM
     Dosage: 65 ML, SINGLE
     Route: 042
     Dates: start: 20170724, end: 20170724

REACTIONS (4)
  - Respiratory arrest [Recovered/Resolved]
  - Respiratory distress [None]
  - Asthma [None]
  - Bronchial secretion retention [None]

NARRATIVE: CASE EVENT DATE: 20170724
